FAERS Safety Report 16956366 (Version 1)
Quarter: 2019Q4

REPORT INFORMATION
  Report Type: Spontaneous
  Country: US (occurrence: US)
  Receive Date: 20191024
  Receipt Date: 20191024
  Transmission Date: 20200122
  Serious: No
  Sender: FDA-Public Use
  Company Number: US-ASTRAZENECA-2019SF37994

PATIENT
  Sex: Male

DRUGS (2)
  1. BYDUREON BCISE [Suspect]
     Active Substance: EXENATIDE
     Dosage: UNKNOWN
     Route: 065
  2. BYDUREON [Suspect]
     Active Substance: EXENATIDE
     Route: 065

REACTIONS (11)
  - Incorrect dose administered by device [Unknown]
  - Tremor [Unknown]
  - Injection site extravasation [Unknown]
  - Intentional product misuse [Unknown]
  - Drug ineffective [Unknown]
  - Injection site mass [Recovered/Resolved with Sequelae]
  - Blood glucose decreased [Unknown]
  - Fatigue [Unknown]
  - Presyncope [Unknown]
  - Injection site haemorrhage [Unknown]
  - Product quality issue [Unknown]
